FAERS Safety Report 10483315 (Version 2)
Quarter: 2014Q4

REPORT INFORMATION
  Report Type: Spontaneous
  Country: US (occurrence: US)
  Receive Date: 20140930
  Receipt Date: 20141006
  Transmission Date: 20150528
  Serious: Yes (Other)
  Sender: FDA-Public Use
  Company Number: US-PFIZER INC-2014266172

PATIENT
  Age: 51 Year
  Sex: Female
  Weight: 91.61 kg

DRUGS (10)
  1. ENBREL [Concomitant]
     Active Substance: ETANERCEPT
     Indication: RHEUMATOID ARTHRITIS
     Dosage: UNK
  2. PEPCID [Concomitant]
     Active Substance: FAMOTIDINE
     Indication: DYSPEPSIA
     Dosage: 40 MG, 2X/DAY
  3. PROCARDIA XL [Suspect]
     Active Substance: NIFEDIPINE
     Indication: HYPERTENSION
     Dosage: 30 MG, 1X/DAY
     Route: 048
     Dates: start: 2000
  4. PROCARDIA XL [Suspect]
     Active Substance: NIFEDIPINE
     Dosage: 30 MG, 1X/DAY
     Route: 048
     Dates: start: 2011
  5. LEUCOVORIN [Concomitant]
     Active Substance: LEUCOVORIN
     Dosage: 25 MG, (TO BE TAKEN 12-14HRS AFTER TAKING METHOTREXATE)
  6. HYDROCODONE/ACETAMINOPHEN [Concomitant]
     Active Substance: ACETAMINOPHEN\HYDROCODONE
     Indication: PAIN
     Dosage: 5MG/325MG,4X/DAY
  7. TYLENOL [Concomitant]
     Active Substance: ACETAMINOPHEN
     Dosage: UNK
  8. FLEXERIL [Concomitant]
     Active Substance: CYCLOBENZAPRINE HYDROCHLORIDE
     Indication: MUSCLE RELAXANT THERAPY
     Dosage: 20 MG, 1X/DAY (BY TAKING 2 TABLETS OF 10 MG EACH TOGETHER) AT BEDTIME
  9. POTASSIUM [Concomitant]
     Active Substance: POTASSIUM
     Dosage: UNK
  10. METHOTREXATE [Concomitant]
     Active Substance: METHOTREXATE
     Indication: RHEUMATOID ARTHRITIS
     Dosage: UNK

REACTIONS (1)
  - Breast cancer female [Unknown]

NARRATIVE: CASE EVENT DATE: 201307
